FAERS Safety Report 16049188 (Version 1)
Quarter: 2019Q1

REPORT INFORMATION
  Report Type: Spontaneous
  Country: US (occurrence: US)
  Receive Date: 20190307
  Receipt Date: 20190307
  Transmission Date: 20190418
  Serious: Yes (Other)
  Sender: FDA-Public Use
  Company Number: US-ASTRAZENECA-2006BM02771

PATIENT
  Age: 708 Month
  Sex: Female

DRUGS (4)
  1. ONGLYZA [Suspect]
     Active Substance: SAXAGLIPTIN HYDROCHLORIDE
     Indication: TYPE 2 DIABETES MELLITUS
     Route: 048
     Dates: start: 20100209, end: 20170321
  2. HUMALOG [Concomitant]
     Active Substance: INSULIN LISPRO
     Dosage: 8.0IU AS REQUIRED
  3. HUMULIN N [Concomitant]
     Active Substance: INSULIN HUMAN
     Dates: start: 200601
  4. BYETTA [Suspect]
     Active Substance: EXENATIDE
     Indication: PRODUCT USED FOR UNKNOWN INDICATION
     Route: 058
     Dates: start: 200601

REACTIONS (6)
  - Blood glucose increased [Not Recovered/Not Resolved]
  - Nausea [Recovering/Resolving]
  - Cardiac failure congestive [Unknown]
  - Gastrooesophageal reflux disease [Recovering/Resolving]
  - Cardiac failure [Unknown]
  - Weight decreased [Unknown]

NARRATIVE: CASE EVENT DATE: 200601
